FAERS Safety Report 9087087 (Version 1)
Quarter: 2013Q1

REPORT INFORMATION
  Report Type: Spontaneous
  Country: FR (occurrence: FR)
  Receive Date: 20130217
  Receipt Date: 20130217
  Transmission Date: 20140127
  Serious: Yes (Other)
  Sender: FDA-Public Use
  Company Number: FR-JNJFOC-20130115737

PATIENT
  Age: 73 Year
  Sex: Male

DRUGS (2)
  1. IXPRIM [Suspect]
     Indication: PROCEDURAL PAIN
     Route: 048
     Dates: start: 20121220
  2. INNOHEP [Concomitant]
     Indication: DEEP VEIN THROMBOSIS
     Route: 058
     Dates: start: 201212

REACTIONS (3)
  - Raynaud^s phenomenon [Not Recovered/Not Resolved]
  - Sleep disorder [Not Recovered/Not Resolved]
  - Blood pressure systolic increased [Not Recovered/Not Resolved]
